FAERS Safety Report 6918085-7 (Version None)
Quarter: 2010Q3

REPORT INFORMATION
  Report Type: 
  Country: None (occurrence: None)
  Receive Date: 20100806
  Receipt Date: 20100721
  Transmission Date: 20110219
  Serious: Yes (Hospitalization)
  Sender: FDA-Public Use
  Company Number: DSJ-2010-12836

PATIENT
  Age: 38 Year
  Sex: Male

DRUGS (12)
  1. OFLOCET (OFLOXACIN) (EAR DROPS) (OFLOXACIN) [Suspect]
     Indication: EAR INFECTION
     Dosage: AURICULAR (OTIC)
     Route: 001
     Dates: start: 20091124, end: 20091201
  2. WELLVONE (ATOVAQUONE) (ATOVAQUONE) [Suspect]
     Indication: PRODUCT USED FOR UNKNOWN INDICATION
     Dosage: 10 ML (5 ML, 2 IN 1 D), PER ORAL
     Route: 048
     Dates: start: 20091127, end: 20091202
  3. BACTRIM [Suspect]
     Indication: PRODUCT USED FOR UNKNOWN INDICATION
     Dosage: 1 DOSAGE FORMS, PER ORAL
     Route: 048
     Dates: start: 20091117, end: 20091126
  4. GLUCOPHAGE [Suspect]
     Indication: DIABETES MELLITUS
     Dosage: 1700 MG, PER ORAL
     Route: 048
     Dates: start: 20091116, end: 20091126
  5. AMOXICILLIN/CLAVULANIC ACID (AMOXICILLIN, CLAVULANIC ACID) (AMOXICILLI [Suspect]
     Indication: EAR INFECTION
     Dosage: PER ORAL
     Route: 048
     Dates: start: 20091104, end: 20091204
  6. TRIZIVIR [Suspect]
     Indication: HIV INFECTION
     Dosage: PER ORAL
     Route: 048
     Dates: start: 20091123, end: 20091126
  7. DIPROSONE (BETAMETHASOEN SODIUM PHOSPHATE) (BETAMETHASOEN SODIUM PHOSP [Concomitant]
  8. VASELINE (PARAFFIN SOFT) (PARAFFIN SOFT) [Concomitant]
  9. CALCIUM FOLINATE (CALCIUM FOLINATE) (CALCIUM FOLINATE) [Concomitant]
  10. IMOVANE (ZOPICLONE) (ZOPICLONE) [Concomitant]
  11. KALETRA (LOPINAVIR) (LOPINAVIR) [Concomitant]
  12. COMBIVIR (ZIDOVUDINE, LAMIVUDINE) (ZIDOVUDINE, LAMIVUDINE) [Concomitant]

REACTIONS (5)
  - ALANINE AMINOTRANSFERASE INCREASED [None]
  - ASPARTATE AMINOTRANSFERASE [None]
  - BLOOD BILIRUBIN INCREASED [None]
  - EAR INFECTION [None]
  - TREATMENT NONCOMPLIANCE [None]
